APPROVED DRUG PRODUCT: SCRUBTEAM SURGICAL SPONGEBRUSH
Active Ingredient: HEXACHLOROPHENE
Strength: 330MG
Dosage Form/Route: SPONGE;TOPICAL
Application: N017413 | Product #001
Applicant: 3M CO
Approved: Approved Prior to Jan 1, 1982 | RLD: No | RS: No | Type: DISCN